FAERS Safety Report 8416952-9 (Version None)
Quarter: 2012Q2

REPORT INFORMATION
  Report Type: 
  Country: None (occurrence: None)
  Receive Date: 20120606
  Receipt Date: 20120531
  Transmission Date: 20120825
  Serious: Yes (Hospitalization, Other)
  Sender: FDA-Public Use
  Company Number: US-PFIZER INC-2012131543

PATIENT
  Sex: Male

DRUGS (1)
  1. VIAGRA [Suspect]
     Dosage: 100 MG, UNK

REACTIONS (7)
  - CEREBROVASCULAR ACCIDENT [None]
  - TRANSIENT ISCHAEMIC ATTACK [None]
  - MUSCULAR WEAKNESS [None]
  - CEREBRAL ARTERY STENOSIS [None]
  - CERVICOBRACHIAL SYNDROME [None]
  - HYPOAESTHESIA [None]
  - ROAD TRAFFIC ACCIDENT [None]
